FAERS Safety Report 22214036 (Version 1)
Quarter: 2023Q2

REPORT INFORMATION
  Report Type: Spontaneous
  Country: US (occurrence: US)
  Receive Date: 20230414
  Receipt Date: 20230414
  Transmission Date: 20230721
  Serious: No
  Sender: FDA-Public Use
  Company Number: US-JNJFOC-20200128739

PATIENT
  Sex: Female
  Weight: 90.800 kg

DRUGS (1)
  1. IMODIUM A-D [Suspect]
     Active Substance: LOPERAMIDE HYDROCHLORIDE
     Indication: Diarrhoea
     Dosage: 1 30 ML, 1 15ML, 1 15 ML 3X A DAY
     Route: 048

REACTIONS (1)
  - Drug ineffective [Unknown]
